FAERS Safety Report 13064231 (Version 1)
Quarter: 2016Q4

REPORT INFORMATION
  Report Type: Spontaneous
  Country: US (occurrence: US)
  Receive Date: 20161223
  Receipt Date: 20161223
  Transmission Date: 20170207
  Serious: Yes (Hospitalization, Disabling, Other)
  Sender: FDA-Public Use
  Company Number: None

PATIENT
  Age: 67 Year
  Sex: Female
  Weight: 77.4 kg

DRUGS (3)
  1. PRO BIOTICS [Concomitant]
  2. VITAMINS [Concomitant]
     Active Substance: VITAMINS
  3. KETAMINE [Suspect]
     Active Substance: KETAMINE
     Indication: ANAESTHESIA
     Dosage: ?          OTHER FREQUENCY:GIVEN ONCE;?
     Route: 042
     Dates: start: 20161221, end: 20161221

REACTIONS (5)
  - Disorientation [None]
  - Chest pain [None]
  - Apparent death [None]
  - Fear [None]
  - Hallucination [None]

NARRATIVE: CASE EVENT DATE: 20161221
